FAERS Safety Report 24549203 (Version 2)
Quarter: 2024Q4

REPORT INFORMATION
  Report Type: Spontaneous
  Country: CA (occurrence: CA)
  Receive Date: 20241025
  Receipt Date: 20241029
  Transmission Date: 20250115
  Serious: Yes (Other)
  Sender: JOHNSON AND JOHNSON
  Company Number: CA-JNJFOC-20241064900

PATIENT
  Sex: Male

DRUGS (7)
  1. STELARA [Suspect]
     Active Substance: USTEKINUMAB
     Indication: Product used for unknown indication
     Route: 058
     Dates: start: 20241016, end: 20241016
  2. STELARA [Suspect]
     Active Substance: USTEKINUMAB
  3. VYEPTI [Concomitant]
     Active Substance: EPTINEZUMAB-JJMR
     Indication: Migraine
     Route: 042
     Dates: start: 20230526
  4. JARDIANCE [Concomitant]
     Active Substance: EMPAGLIFLOZIN
  5. CANDESARTAN [Concomitant]
     Active Substance: CANDESARTAN
  6. ATORVASTATIN [Concomitant]
     Active Substance: ATORVASTATIN
  7. INSULIN NOS [Concomitant]
     Active Substance: INSULIN NOS

REACTIONS (4)
  - Wrong product administered [Unknown]
  - Wrong patient received product [Unknown]
  - Pain in extremity [Unknown]
  - Emotional distress [Unknown]

NARRATIVE: CASE EVENT DATE: 20241016
